FAERS Safety Report 18164528 (Version 2)
Quarter: 2020Q3

REPORT INFORMATION
  Report Type: Spontaneous
  Country: NL (occurrence: NL)
  Receive Date: 20200818
  Receipt Date: 20200904
  Transmission Date: 20201103
  Serious: Yes (Other)
  Sender: FDA-Public Use
  Company Number: NL-PFIZER INC-2020314555

PATIENT
  Age: 49 Year
  Sex: Female

DRUGS (1)
  1. STEDIRIL?30 [Suspect]
     Active Substance: ETHINYL ESTRADIOL\LEVONORGESTREL
     Indication: DYSMENORRHOEA
     Dosage: UNK
     Route: 048

REACTIONS (6)
  - Uterine spasm [Unknown]
  - Abortion spontaneous [Unknown]
  - Anxiety [Unknown]
  - Product use in unapproved indication [Unknown]
  - Off label use [Unknown]
  - Hot flush [Not Recovered/Not Resolved]
